FAERS Safety Report 10355893 (Version 1)
Quarter: 2014Q3

REPORT INFORMATION
  Report Type: Spontaneous
  Country: ES (occurrence: ES)
  Receive Date: 20140801
  Receipt Date: 20140801
  Transmission Date: 20150326
  Serious: Yes (Hospitalization)
  Sender: FDA-Public Use
  Company Number: ES-ACCORD-025033

PATIENT
  Age: 82 Year
  Sex: Male

DRUGS (1)
  1. METHOTREXATE [Suspect]
     Active Substance: METHOTREXATE
     Indication: RHEUMATOID ARTHRITIS
     Dosage: 7.5 MG/DAY OF METHOTREXATE FOR MORE THAN A MONTH WITHOUT FOLINIC ACID SUPPLEMENTATION.
     Route: 048

REACTIONS (5)
  - Bone marrow failure [Recovering/Resolving]
  - Mucosal inflammation [Recovering/Resolving]
  - Mucosal haemorrhage [Recovering/Resolving]
  - Pneumonitis [Recovering/Resolving]
  - Toxicity to various agents [Unknown]
